FAERS Safety Report 18545763 (Version 1)
Quarter: 2020Q4

REPORT INFORMATION
  Report Type: Spontaneous
  Country: KR (occurrence: KR)
  Receive Date: 20201125
  Receipt Date: 20201125
  Transmission Date: 20210114
  Serious: Yes (Hospitalization, Other)
  Sender: FDA-Public Use
  Company Number: KR-PFM-2020-21320

PATIENT
  Age: 15 Year
  Sex: Male

DRUGS (7)
  1. PROPRANOLOL [Suspect]
     Active Substance: PROPRANOLOL HYDROCHLORIDE
     Indication: OFF LABEL USE
  2. INTERFERON ALFA NOS [Concomitant]
     Active Substance: INTERFERON ALFA-2A OR INTERFERON ALFA-2B
     Indication: ANTIANGIOGENIC THERAPY
     Dosage: UNK
     Route: 065
     Dates: start: 201510, end: 201602
  3. GLUCOCORTICOSTEROIDS [Concomitant]
     Active Substance: UNSPECIFIED INGREDIENT
     Indication: LYMPHATIC DISORDER
     Dosage: UNK
     Route: 065
     Dates: start: 201511
  4. SIROLIMUS. [Concomitant]
     Active Substance: SIROLIMUS
     Indication: LYMPHATIC DISORDER
     Dosage: UNK
     Route: 065
     Dates: start: 201605, end: 201901
  5. PROPRANOLOL [Suspect]
     Active Substance: PROPRANOLOL HYDROCHLORIDE
     Indication: VASCULAR ENDOTHELIAL GROWTH FACTOR OVEREXPRESSION
     Dosage: UNK
     Route: 065
     Dates: start: 201503
  6. PROPRANOLOL [Suspect]
     Active Substance: PROPRANOLOL HYDROCHLORIDE
     Indication: ANTIANGIOGENIC THERAPY
  7. PAMIDRONATE DISODIUM. [Concomitant]
     Active Substance: PAMIDRONATE DISODIUM
     Indication: OSTEOLYSIS
     Dosage: 20 TIMES EITHER EVERY 1-2 MONTHS (2ND-19TH DOSE) OR INTERMITTENTLY (0.5-1.5 YEAR INTERVAL)
     Route: 065
     Dates: start: 201010, end: 201602

REACTIONS (8)
  - Proteinuria [Recovered/Resolved]
  - Respiratory failure [Unknown]
  - Product use issue [Unknown]
  - Focal segmental glomerulosclerosis [Unknown]
  - Growth retardation [Unknown]
  - Product use in unapproved indication [Unknown]
  - Off label use [Unknown]
  - Pneumonia [Unknown]

NARRATIVE: CASE EVENT DATE: 201504
